FAERS Safety Report 8735654 (Version 4)
Quarter: 2012Q4

REPORT INFORMATION
  Report Type: 
  Country: FR (occurrence: FR)
  Receive Date: 20120822
  Receipt Date: 20120925
  Transmission Date: 20130627
  Serious: Yes (Hospitalization)
  Sender: FDA-Public Use
  Company Number: FR-JNJFOC-20120809112

PATIENT
  Age: 70 Year
  Sex: Male

DRUGS (2)
  1. ZYTIGA [Suspect]
     Indication: PROSTATE CANCER METASTATIC
     Dosage: introduced 5 months before
     Route: 048
     Dates: start: 201203, end: 20120724
  2. MEDROL [Concomitant]
     Route: 048

REACTIONS (3)
  - Cardiogenic shock [Recovered/Resolved]
  - Myocardial ischaemia [Recovered/Resolved with Sequelae]
  - Pleural effusion [Recovered/Resolved]
